FAERS Safety Report 12788057 (Version 1)
Quarter: 2016Q3

REPORT INFORMATION
  Report Type: Spontaneous
  Country: US (occurrence: US)
  Receive Date: 20160928
  Receipt Date: 20160928
  Transmission Date: 20161109
  Serious: Yes (Hospitalization)
  Sender: FDA-Public Use
  Company Number: None

PATIENT
  Age: 4 Year
  Sex: Male
  Weight: 14.9 kg

DRUGS (5)
  1. ONCASPAR [Suspect]
     Active Substance: PEGASPARGASE
     Dates: end: 20160808
  2. VINCRISTINE SULFATE. [Suspect]
     Active Substance: VINCRISTINE SULFATE
     Dates: end: 20160826
  3. DEXAMETHASONE. [Suspect]
     Active Substance: DEXAMETHASONE
     Dates: end: 20160902
  4. METHOTREXATE. [Suspect]
     Active Substance: METHOTREXATE
     Route: 037
     Dates: end: 20160902
  5. CYTARABINE. [Suspect]
     Active Substance: CYTARABINE
     Dates: end: 20160804

REACTIONS (7)
  - Blood urea increased [None]
  - Urate nephropathy [None]
  - Electrocardiogram T wave abnormal [None]
  - Hyperkalaemia [None]
  - Blood creatinine increased [None]
  - Acute kidney injury [None]
  - Haemodialysis [None]

NARRATIVE: CASE EVENT DATE: 20160902
